FAERS Safety Report 4787108-6 (Version None)
Quarter: 2005Q4

REPORT INFORMATION
  Report Type: 
  Country: None (occurrence: None)
  Receive Date: 20051004
  Receipt Date: 20050920
  Transmission Date: 20060501
  Serious: Yes (Other)
  Sender: FDA-Public Use
  Company Number: US-GLAXOSMITHKLINE-A0574956A

PATIENT
  Age: 85 Year
  Sex: Female

DRUGS (1)
  1. BC [Suspect]
     Indication: HEADACHE
     Route: 048

REACTIONS (3)
  - ACCIDENTAL OVERDOSE [None]
  - COAGULOPATHY [None]
  - HAEMORRHAGE [None]
